FAERS Safety Report 16665303 (Version 1)
Quarter: 2019Q3

REPORT INFORMATION
  Report Type: Spontaneous
  Country: DE (occurrence: DE)
  Receive Date: 20190803
  Receipt Date: 20190803
  Transmission Date: 20191004
  Serious: Yes (Other)
  Sender: FDA-Public Use
  Company Number: DE-MICRO LABS LIMITED-ML2019-01810

PATIENT
  Age: 12 Year
  Sex: Male

DRUGS (5)
  1. FELBAMATE. [Interacting]
     Active Substance: FELBAMATE
     Indication: EPILEPSY
  2. PREGABALIN. [Interacting]
     Active Substance: PREGABALIN
     Indication: EPILEPSY
  3. CLOBAZAM. [Suspect]
     Active Substance: CLOBAZAM
     Indication: EPILEPSY
  4. PHENOBARBITAL. [Interacting]
     Active Substance: PHENOBARBITAL
     Indication: EPILEPSY
  5. ETHOSUXIMIDE. [Interacting]
     Active Substance: ETHOSUXIMIDE
     Indication: EPILEPSY

REACTIONS (2)
  - Epilepsy [Unknown]
  - Drug interaction [Unknown]
